FAERS Safety Report 7359195-2 (Version None)
Quarter: 2011Q1

REPORT INFORMATION
  Report Type: 
  Country: None (occurrence: None)
  Receive Date: 20110317
  Receipt Date: 20110314
  Transmission Date: 20110831
  Serious: Yes (Hospitalization, Other)
  Sender: FDA-Public Use
  Company Number: US-ELI_LILLY_AND_COMPANY-US201102003968

PATIENT
  Sex: Female

DRUGS (5)
  1. HUMALOG [Suspect]
     Indication: DIABETES MELLITUS
     Dosage: 30 U, DAILY (1/D)
     Dates: start: 20010101
  2. HUMALOG [Suspect]
     Dosage: 8 U, 3/D
     Dates: start: 20010101
  3. LANTUS [Concomitant]
     Dosage: 48 U, DAILY (1/D)
  4. INSULIN [Concomitant]
     Dates: start: 19700101
  5. HUMALOG [Suspect]
     Dosage: 8 U, 3/D
     Dates: start: 20010101

REACTIONS (4)
  - POOR PERIPHERAL CIRCULATION [None]
  - NERVE COMPRESSION [None]
  - BACK PAIN [None]
  - SPINAL FRACTURE [None]
